FAERS Safety Report 15982738 (Version 1)
Quarter: 2019Q1

REPORT INFORMATION
  Report Type: Spontaneous
  Country: FR (occurrence: FR)
  Receive Date: 20190219
  Receipt Date: 20190219
  Transmission Date: 20190418
  Serious: Yes (Hospitalization)
  Sender: FDA-Public Use
  Company Number: FR-PFIZER INC-2019063900

PATIENT
  Age: 57 Year
  Sex: Female
  Weight: 87 kg

DRUGS (7)
  1. LEVOTHYROX [Suspect]
     Active Substance: LEVOTHYROXINE
     Dosage: 350 UG, UNK
     Route: 048
     Dates: start: 20180628, end: 20180628
  2. VENLAFAXINE HCL [Suspect]
     Active Substance: VENLAFAXINE HYDROCHLORIDE
     Dosage: 1050 MG, UNK
     Route: 048
     Dates: start: 20180628, end: 20180628
  3. PARACETAMOL [Suspect]
     Active Substance: ACETAMINOPHEN
     Dosage: 8000 MG, UNK
     Route: 048
     Dates: start: 20180628, end: 20180628
  4. DILTIAZEM HYDROCHLORIDE. [Suspect]
     Active Substance: DILTIAZEM HYDROCHLORIDE
     Dosage: 1400 MG, UNK
     Route: 048
     Dates: start: 20180628, end: 20180628
  5. BROMAZEPAM [Suspect]
     Active Substance: BROMAZEPAM
     Dosage: 21 MG, UNK
     Route: 048
     Dates: start: 20180628, end: 20180628
  6. PREGABALIN. [Suspect]
     Active Substance: PREGABALIN
     Dosage: 1575 MG, UNK
     Route: 048
     Dates: start: 20180628, end: 20180628
  7. LAMALINE (ACETAMINOPHEN\CAFFEINE\OPIUM) [Suspect]
     Active Substance: ACETAMINOPHEN\CAFFEINE\OPIUM
     Dosage: 280 MG, UNK
     Route: 048
     Dates: start: 20180628, end: 20180628

REACTIONS (3)
  - Hypotension [Recovered/Resolved]
  - Toxic encephalopathy [Recovered/Resolved]
  - Tachycardia [Recovered/Resolved]

NARRATIVE: CASE EVENT DATE: 20180628
